FAERS Safety Report 7290689-4 (Version None)
Quarter: 2011Q1

REPORT INFORMATION
  Report Type: 
  Country: None (occurrence: None)
  Receive Date: 20110214
  Receipt Date: 20110207
  Transmission Date: 20110831
  Serious: No
  Sender: FDA-Public Use
  Company Number: US-JNJFOC-20110202271

PATIENT
  Sex: Male
  Weight: 136.08 kg

DRUGS (6)
  1. FENTANYL-100 [Suspect]
     Indication: BACK PAIN
     Dosage: NDC NUMBER: 0781-7242-55
     Route: 062
  2. ASPIRIN [Concomitant]
     Indication: PROPHYLAXIS
     Route: 048
  3. FENTANYL-100 [Suspect]
     Dosage: NDC NUMBER: 0781-7242-55
     Route: 062
  4. FENTANYL-100 [Suspect]
     Indication: ARTHRALGIA
     Route: 062
  5. ZANTAC [Concomitant]
     Dosage: AS NEEDED
     Route: 048
  6. FENTANYL-100 [Suspect]
     Route: 062

REACTIONS (9)
  - APPLICATION SITE PAIN [None]
  - PRODUCT QUALITY ISSUE [None]
  - THERAPEUTIC RESPONSE DECREASED [None]
  - APPLICATION SITE IRRITATION [None]
  - SOMNOLENCE [None]
  - PRODUCT ADHESION ISSUE [None]
  - DRUG EFFECT INCREASED [None]
  - WRONG TECHNIQUE IN DRUG USAGE PROCESS [None]
  - APPLICATION SITE VESICLES [None]
